FAERS Safety Report 7581449-5 (Version None)
Quarter: 2011Q2

REPORT INFORMATION
  Report Type: 
  Country: None (occurrence: None)
  Receive Date: 20110629
  Receipt Date: 20110616
  Transmission Date: 20111010
  Serious: Yes (Hospitalization)
  Sender: FDA-Public Use
  Company Number: PHHY2011CH53457

PATIENT
  Age: 74 Year
  Sex: Male

DRUGS (8)
  1. ENALAPRIL MALEATE [Concomitant]
     Dosage: UNK UKN, UNK
     Route: 048
  2. ALDACTONE [Concomitant]
     Dosage: 25 MG, DAILY
     Route: 048
  3. TORSEMIDE [Concomitant]
     Dosage: UNK UKN, UNK
     Route: 048
  4. TENORMIN [Concomitant]
     Dosage: UNK UKN, UNK
  5. VOLTAREN [Suspect]
     Indication: PAIN
     Dosage: UNK UKN, UNK
     Route: 048
     Dates: end: 20110311
  6. NITRODERM [Concomitant]
     Dosage: UNK UKN, UNK
  7. MARCOUMAR [Concomitant]
     Dosage: UNK UKN, UNK
  8. SIMVASTATIN [Concomitant]
     Dosage: UNK UKN, UNK

REACTIONS (16)
  - ARRHYTHMIA [None]
  - HYPERKALAEMIA [None]
  - DYSPNOEA [None]
  - CARDIOGENIC SHOCK [None]
  - RENAL FAILURE ACUTE [None]
  - PAIN [None]
  - CONFUSIONAL STATE [None]
  - BLOOD CREATININE INCREASED [None]
  - TROPONIN INCREASED [None]
  - VENTRICULAR TACHYCARDIA [None]
  - HAEMODYNAMIC INSTABILITY [None]
  - METABOLIC ACIDOSIS [None]
  - BRADYCARDIA [None]
  - ATRIOVENTRICULAR BLOCK COMPLETE [None]
  - MYOCARDIAL ISCHAEMIA [None]
  - NAUSEA [None]
